FAERS Safety Report 13843620 (Version 1)
Quarter: 2017Q3

REPORT INFORMATION
  Report Type: Spontaneous
  Country: US (occurrence: US)
  Receive Date: 20170808
  Receipt Date: 20170808
  Transmission Date: 20171127
  Serious: No
  Sender: FDA-Public Use
  Company Number: None

PATIENT
  Sex: Female

DRUGS (1)
  1. XARELTO [Suspect]
     Active Substance: RIVAROXABAN

REACTIONS (13)
  - Swelling [None]
  - Haemoptysis [None]
  - Haematemesis [None]
  - Blood test abnormal [None]
  - Incorrect dose administered [None]
  - Overdose [None]
  - Liver disorder [None]
  - Drug dispensing error [None]
  - Cough [None]
  - Pain [None]
  - Haemorrhage [None]
  - Contusion [None]
  - Inflammation [None]

NARRATIVE: CASE EVENT DATE: 2017
